FAERS Safety Report 7122375-5 (Version None)
Quarter: 2010Q4

REPORT INFORMATION
  Report Type: 
  Country: None (occurrence: None)
  Receive Date: 20101124
  Receipt Date: 20101122
  Transmission Date: 20110411
  Serious: Yes (Hospitalization)
  Sender: FDA-Public Use
  Company Number: US-ALEXION-A201001264

PATIENT
  Sex: Male

DRUGS (9)
  1. SOLIRIS [Suspect]
     Indication: PAROXYSMAL NOCTURNAL HAEMOGLOBINURIA
     Dosage: 600 MG, QW X 4 WEEKS
     Route: 042
     Dates: start: 20091029, end: 20090101
  2. SOLIRIS [Suspect]
     Dosage: 900 MG, Q2W
     Route: 042
     Dates: start: 20091209
  3. CYCLOSPORINE [Concomitant]
     Indication: PAROXYSMAL NOCTURNAL HAEMOGLOBINURIA
     Dosage: 150 MG, BID
     Route: 048
  4. CYCLOSPORINE [Concomitant]
     Indication: APLASTIC ANAEMIA
  5. EXJADE [Concomitant]
     Indication: IRON OVERLOAD
     Dosage: 120 MG, QD
     Route: 048
  6. OXYCONTIN [Concomitant]
     Dosage: 120 MG, BID
     Route: 048
  7. PERCOCET [Concomitant]
     Dosage: 1-2 Q4 HOURS PRN
     Route: 048
  8. NEUPOGEN [Concomitant]
     Dosage: 300 UG, QD
  9. PROCRIT                            /00909301/ [Concomitant]
     Dosage: 4000 UNITS, QW

REACTIONS (2)
  - APLASTIC ANAEMIA [None]
  - PYREXIA [None]
